FAERS Safety Report 25912561 (Version 3)
Quarter: 2025Q4

REPORT INFORMATION
  Report Type: Spontaneous
  Country: US (occurrence: US)
  Receive Date: 20251013
  Receipt Date: 20251224
  Transmission Date: 20260118
  Serious: No
  Sender: Kenvue
  Company Number: US-KENVUE-20250809067

PATIENT
  Age: 48 Year
  Sex: Male

DRUGS (1)
  1. VISINE A MULTI-ACTION EYE ALLERGY RELIEF [Suspect]
     Active Substance: NAPHAZOLINE HYDROCHLORIDE\PHENIRAMINE MALEATE
     Indication: Seasonal allergy
     Dosage: 1 DROP EACH EYE, ONCE A DAY
     Dates: start: 20250818

REACTIONS (4)
  - Ocular hyperaemia [Not Recovered/Not Resolved]
  - Expired product administered [Unknown]
  - Wrong product administered [Unknown]
  - Product label on wrong product [Unknown]

NARRATIVE: CASE EVENT DATE: 20250818
